FAERS Safety Report 11365202 (Version 2)
Quarter: 2015Q3

REPORT INFORMATION
  Report Type: Spontaneous
  Country: US (occurrence: US)
  Receive Date: 20150811
  Receipt Date: 20150928
  Transmission Date: 20151125
  Serious: Yes (Hospitalization)
  Sender: FDA-Public Use
  Company Number: US-ACTELION-A-US2015-120376

PATIENT
  Age: 78 Year
  Sex: Female

DRUGS (1)
  1. TRACLEER [Suspect]
     Active Substance: BOSENTAN
     Indication: PULMONARY ARTERIAL HYPERTENSION
     Dosage: UNK
     Route: 048

REACTIONS (8)
  - Dyspnoea [Unknown]
  - Chest pain [Unknown]
  - Vomiting [Unknown]
  - Drug hypersensitivity [Unknown]
  - Syncope [Unknown]
  - Pneumonia [Unknown]
  - Rash [Unknown]
  - Hypotension [Unknown]
